FAERS Safety Report 7649937-0 (Version None)
Quarter: 2011Q3

REPORT INFORMATION
  Report Type: 
  Country: None (occurrence: None)
  Receive Date: 20110802
  Receipt Date: 20110728
  Transmission Date: 20111222
  Serious: Yes (Other)
  Sender: FDA-Public Use
  Company Number: DE-BRISTOL-MYERS SQUIBB COMPANY-15895394

PATIENT
  Age: 71 Year
  Sex: Female
  Weight: 105 kg

DRUGS (5)
  1. LEVOTHYROXINE SODIUM [Concomitant]
     Indication: HYPOTHYROIDISM
     Dosage: L-THYROXINE 150,1X1, FOR YEARS
  2. OMEPRAZOLE [Concomitant]
     Indication: GASTRITIS
     Dosage: OMEPRAZOLE 20,FOR YEARS
  3. MICARDIS [Concomitant]
     Indication: HYPERTENSION
     Dosage: MICARDIS 80,1X1,FOR YEARS
  4. ONGLYZA [Suspect]
     Indication: TYPE 2 DIABETES MELLITUS
     Dosage: ONLY ONCE
     Dates: start: 20110706, end: 20110708
  5. IBUPROFEN TABLETS [Concomitant]
     Indication: ARTHRALGIA
     Dosage: IBUHEXAL 800,1 DF : 2X1,FOR YEARS

REACTIONS (1)
  - ANGIOEDEMA [None]
